FAERS Safety Report 10025892 (Version 1)
Quarter: 2014Q1

REPORT INFORMATION
  Report Type: Spontaneous
  Country: TR (occurrence: None)
  Receive Date: 20140314
  Receipt Date: 20140314
  Transmission Date: 20141002
  Serious: Yes (Life-Threatening)
  Sender: FDA-Public Use
  Company Number: FK201400779

PATIENT
  Age: 36 Year
  Sex: Female

DRUGS (4)
  1. PROPOFOL 1% FRESENIUS (PROPOFOL) (PROPOFOL) [Suspect]
     Indication: INDUCTION OF ANAESTHESIA
     Dosage: (NOT OTHERWISE SPECIFIED)
     Route: 042
     Dates: start: 20140221, end: 20140221
  2. DEMIZOLAM (MIDAZOLAM HYDROCHLORIDE) [Concomitant]
  3. FENTANYL (FENTANYL) [Concomitant]
  4. ATRACURIUM (ATRACURIUM) [Concomitant]

REACTIONS (3)
  - Myoclonus [None]
  - Muscle spasms [None]
  - Anaesthetic complication [None]
